FAERS Safety Report 16036470 (Version 1)
Quarter: 2019Q1

REPORT INFORMATION
  Report Type: Spontaneous
  Country: US (occurrence: US)
  Receive Date: 20190305
  Receipt Date: 20190305
  Transmission Date: 20190418
  Serious: No
  Sender: FDA-Public Use
  Company Number: US-ALLERGAN-1905079US

PATIENT
  Sex: Female

DRUGS (2)
  1. ESTRACE [Suspect]
     Active Substance: ESTRADIOL
     Indication: CYSTITIS
     Dosage: UNK
     Route: 065
  2. MICONAZOLE. [Concomitant]
     Active Substance: MICONAZOLE
     Dosage: UNK

REACTIONS (2)
  - Vulvovaginal pain [Recovering/Resolving]
  - Off label use [Unknown]
